FAERS Safety Report 9423042 (Version 1)
Quarter: 2013Q3

REPORT INFORMATION
  Report Type: Spontaneous
  Country: BR (occurrence: BR)
  Receive Date: 20130726
  Receipt Date: 20130726
  Transmission Date: 20140515
  Serious: Yes (Other)
  Sender: FDA-Public Use
  Company Number: BR-GLAXOSMITHKLINE-A1034953A

PATIENT
  Sex: Female
  Weight: 37 kg

DRUGS (1)
  1. SERETIDE [Suspect]
     Indication: ASTHMATIC CRISIS
     Dosage: 1PUFF SEE DOSAGE TEXT
     Route: 055
     Dates: start: 2010

REACTIONS (2)
  - Asthmatic crisis [Unknown]
  - Drug ineffective for unapproved indication [Unknown]
